FAERS Safety Report 12677925 (Version 1)
Quarter: 2016Q3

REPORT INFORMATION
  Report Type: Spontaneous
  Country: JP (occurrence: JP)
  Receive Date: 20160823
  Receipt Date: 20160823
  Transmission Date: 20161109
  Serious: No
  Sender: FDA-Public Use
  Company Number: JP-WARNER CHILCOTT, LLC-1056677

PATIENT
  Age: 88 Year

DRUGS (3)
  1. ETODOLAC. [Concomitant]
     Active Substance: ETODOLAC
     Dates: start: 20110625
  2. ACTONEL [Suspect]
     Active Substance: RISEDRONATE SODIUM
     Route: 048
     Dates: start: 20150303, end: 20160725
  3. MIKAMETAN [Concomitant]
     Dates: start: 20131026

REACTIONS (2)
  - Osteonecrosis of external auditory canal [Unknown]
  - Otitis externa [Unknown]

NARRATIVE: CASE EVENT DATE: 20160603
